FAERS Safety Report 6130260-0 (Version None)
Quarter: 2009Q1

REPORT INFORMATION
  Report Type: 
  Country: None (occurrence: None)
  Receive Date: 20090324
  Receipt Date: 20090317
  Transmission Date: 20090719
  Serious: Yes (Hospitalization)
  Sender: FDA-Public Use
  Company Number: PHEH2009US02413

PATIENT
  Sex: Male

DRUGS (5)
  1. TASIGNA [Suspect]
     Indication: GASTROINTESTINAL STROMAL TUMOUR
     Dosage: 400 MG Q AM, 200 MG Q PM
     Dates: start: 20081118, end: 20090309
  2. COUMADIN [Concomitant]
     Indication: ANTICOAGULANT THERAPY
     Dosage: 3 MG, QD
     Dates: end: 20090309
  3. MAGNESIUM SULFATE [Concomitant]
     Dosage: 600 MG, QD
     Dates: start: 20090308
  4. HYDROCODONE BITARTRATE [Concomitant]
     Indication: PAIN
     Dosage: 5/500 Q 8HR PRN
  5. CARTIA XT [Concomitant]
     Indication: CARDIAC DISORDER
     Dosage: 120 MG, QD
     Dates: start: 20090308

REACTIONS (3)
  - CHOLECYSTITIS ACUTE [None]
  - INTESTINAL OBSTRUCTION [None]
  - PAIN [None]
